FAERS Safety Report 5917500-5 (Version None)
Quarter: 2008Q4

REPORT INFORMATION
  Report Type: 
  Country: None (occurrence: None)
  Receive Date: 20081010
  Receipt Date: 20081010
  Transmission Date: 20090506
  Serious: Yes (Other)
  Sender: FDA-Public Use
  Company Number: None

PATIENT
  Age: 59 Year
  Sex: Female
  Weight: 110.2241 kg

DRUGS (9)
  1. CEFADROXIL [Suspect]
     Indication: CYSTITIS NONINFECTIVE
     Dosage: ONE CAPSULE TWICE DAILY PO
     Route: 048
     Dates: start: 20080924, end: 20081008
  2. CYMBALTA [Concomitant]
  3. CLONAZEPAM [Concomitant]
  4. CRESTOR [Concomitant]
  5. RANITIDINE [Concomitant]
  6. FEXOFENADINE HCL [Concomitant]
  7. PATANASE [Concomitant]
  8. VICODIN [Concomitant]
  9. TYLENOL EXTRA STRENGTH RAPID BLAST LIQUID [Concomitant]

REACTIONS (4)
  - CONFUSIONAL STATE [None]
  - MENTAL DISORDER [None]
  - MOOD ALTERED [None]
  - VULVOVAGINAL DISCOMFORT [None]
